FAERS Safety Report 12450394 (Version 1)
Quarter: 2016Q2

REPORT INFORMATION
  Report Type: Spontaneous
  Country: FR (occurrence: FR)
  Receive Date: 20160609
  Receipt Date: 20160609
  Transmission Date: 20160815
  Serious: Yes (Life-Threatening, Hospitalization, Other)
  Sender: FDA-Public Use
  Company Number: FR-ASTRAZENECA-2016SE59543

PATIENT
  Age: 27483 Day
  Sex: Male

DRUGS (9)
  1. METFORMINE [Suspect]
     Active Substance: METFORMIN HYDROCHLORIDE
     Dosage: 3 DF, DAILY (NON AZ PRODUCT)
     Route: 048
     Dates: start: 20140812, end: 20140819
  2. PHOSPHOSORB [Concomitant]
  3. PROPRANOLOL [Concomitant]
     Active Substance: PROPRANOLOL\PROPRANOLOL HYDROCHLORIDE
  4. ONGLYZA [Suspect]
     Active Substance: SAXAGLIPTIN HYDROCHLORIDE
     Route: 048
     Dates: start: 20140812, end: 20140819
  5. LASILIX SPECIAL [Concomitant]
     Active Substance: FUROSEMIDE
     Dosage: 500.0MG UNKNOWN
  6. ATARAX [Concomitant]
     Active Substance: HYDROXYZINE\HYDROXYZINE HYDROCHLORIDE
     Dosage: 25.0MG UNKNOWN
  7. NOVONORM [Suspect]
     Active Substance: REPAGLINIDE
     Route: 048
     Dates: end: 20140819
  8. KARDEGIC [Concomitant]
     Active Substance: ASPIRIN LYSINE
     Dosage: 75.0MG UNKNOWN
  9. KAYEXALATE [Concomitant]
     Active Substance: SODIUM POLYSTYRENE SULFONATE

REACTIONS (6)
  - Dehydration [Unknown]
  - Diarrhoea [Unknown]
  - Delirium tremens [Unknown]
  - Hyperkalaemia [Recovered/Resolved]
  - Lactic acidosis [Recovered/Resolved]
  - Hypoglycaemia [Recovered/Resolved]

NARRATIVE: CASE EVENT DATE: 20140819
